FAERS Safety Report 24285666 (Version 2)
Quarter: 2025Q1

REPORT INFORMATION
  Report Type: Spontaneous
  Country: JP (occurrence: JP)
  Receive Date: 20240905
  Receipt Date: 20250210
  Transmission Date: 20250408
  Serious: Yes (Hospitalization)
  Sender: BAYER HEALTHCARE PHARMACEUTICALS INC.
  Company Number: JP-BAYER-2024A124731

PATIENT
  Age: 58 Year
  Sex: Male
  Weight: 86.9 kg

DRUGS (3)
  1. NUBEQA [Suspect]
     Active Substance: DAROLUTAMIDE
     Indication: Prostate cancer metastatic
     Dates: start: 20230602
  2. DOCETAXEL [Suspect]
     Active Substance: DOCETAXEL
     Dates: start: 20230719, end: 20230920
  3. DEGARELIX ACETATE [Suspect]
     Active Substance: DEGARELIX ACETATE
     Dates: start: 20230602, end: 20240624

REACTIONS (4)
  - White blood cell count decreased [Recovered/Resolved]
  - Alcoholic liver disease [Not Recovered/Not Resolved]
  - Taste disorder [Not Recovered/Not Resolved]
  - Decreased appetite [None]

NARRATIVE: CASE EVENT DATE: 20230708
